FAERS Safety Report 16249464 (Version 1)
Quarter: 2019Q2

REPORT INFORMATION
  Report Type: Spontaneous
  Country: GB (occurrence: GB)
  Receive Date: 20190429
  Receipt Date: 20190429
  Transmission Date: 20190711
  Serious: Yes (Hospitalization, Other)
  Sender: FDA-Public Use
  Company Number: GB-AUROBINDO-AUR-APL-2019-023048

PATIENT

DRUGS (8)
  1. LAMOTRIGINE. [Suspect]
     Active Substance: LAMOTRIGINE
     Indication: PRODUCT USED FOR UNKNOWN INDICATION
     Dosage: UNK
     Route: 065
     Dates: start: 2017, end: 201808
  2. DEPAKOTE [Interacting]
     Active Substance: DIVALPROEX SODIUM
     Dosage: 220 MILLIGRAM, DAILY
     Route: 065
     Dates: start: 201211
  3. ASPIRIN. [Concomitant]
     Active Substance: ASPIRIN
     Indication: PRODUCT USED FOR UNKNOWN INDICATION
     Dosage: 1 UNK, ONCE A DAY
     Route: 065
     Dates: start: 2013
  4. HALDOL [Suspect]
     Active Substance: HALOPERIDOL
     Indication: PRODUCT USED FOR UNKNOWN INDICATION
     Dosage: 500 MILLIGRAM (EVERY 17 DAYS)
     Route: 065
  5. ASENAPINE MALEATE [Interacting]
     Active Substance: ASENAPINE MALEATE
     Indication: PRODUCT USED FOR UNKNOWN INDICATION
     Dosage: 20 MILLIGRAM
     Route: 065
     Dates: start: 2013
  6. DEPAKOTE [Interacting]
     Active Substance: DIVALPROEX SODIUM
     Indication: PRODUCT USED FOR UNKNOWN INDICATION
     Dosage: 2500 MILLIGRAM
     Route: 065
  7. DEPAKOTE [Interacting]
     Active Substance: DIVALPROEX SODIUM
     Dosage: 2000 MILLIGRAM
     Route: 065
     Dates: start: 201211
  8. DONEPEZIL. [Suspect]
     Active Substance: DONEPEZIL
     Indication: PRODUCT USED FOR UNKNOWN INDICATION
     Dosage: UNK
     Route: 065

REACTIONS (25)
  - Hypotension [Unknown]
  - Depressed mood [Unknown]
  - Somnolence [Unknown]
  - Tinnitus [Unknown]
  - Drug interaction [Unknown]
  - Disease recurrence [Unknown]
  - Selective eating disorder [Unknown]
  - Vascular dementia [Unknown]
  - Oedema [Unknown]
  - Sedation [Unknown]
  - Eyelid oedema [Recovering/Resolving]
  - Weight decreased [Unknown]
  - Labelled drug-drug interaction medication error [Unknown]
  - Dementia Alzheimer^s type [Unknown]
  - Eye burns [Recovering/Resolving]
  - Drug resistance [Unknown]
  - Product use in unapproved indication [Unknown]
  - Depression [Unknown]
  - Deafness [Unknown]
  - Decreased appetite [Unknown]
  - Cellulitis [Recovered/Resolved]
  - Conjunctivitis [Unknown]
  - Drug effective for unapproved indication [Unknown]
  - Swelling face [Unknown]
  - Cerebral atrophy [Unknown]

NARRATIVE: CASE EVENT DATE: 2013
